FAERS Safety Report 8806196 (Version 1)
Quarter: 2012Q4

REPORT INFORMATION
  Report Type: Spontaneous
  Country: US (occurrence: None)
  Receive Date: 20120919
  Receipt Date: 20120919
  Transmission Date: 20130627
  Serious: Yes (Life-Threatening)
  Sender: FDA-Public Use
  Company Number: None

PATIENT
  Age: 12 Year
  Sex: Male
  Weight: 54.89 kg

DRUGS (1)
  1. CELEXA [Suspect]
     Dosage: one tab qam po
     Route: 048
     Dates: start: 20120531, end: 20120829

REACTIONS (2)
  - Affective disorder [None]
  - Product substitution issue [None]
